FAERS Safety Report 8567197-3 (Version None)
Quarter: 2012Q3

REPORT INFORMATION
  Report Type: 
  Country: None (occurrence: None)
  Receive Date: 20120803
  Receipt Date: 20110804
  Transmission Date: 20120928
  Serious: No
  Sender: FDA-Public Use
  Company Number: US-ABBOTT-10P-163-0634669-00

PATIENT
  Sex: Female
  Weight: 52.21 kg

DRUGS (15)
  1. CRESTOR [Suspect]
     Route: 048
     Dates: start: 20100317
  2. FISH OIL [Concomitant]
     Indication: BLOOD CHOLESTEROL INCREASED
  3. CRESTOR [Suspect]
     Indication: BLOOD CHOLESTEROL
     Dates: start: 20100106, end: 20100312
  4. CLONIDINE [Concomitant]
     Indication: HOT FLUSH
  5. NIASPAN [Suspect]
     Dates: start: 20100101, end: 20100801
  6. ATENOLOL [Concomitant]
     Indication: HYPERTENSION
  7. CLONIDINE [Concomitant]
     Indication: HYPERTENSION
  8. ASPIRIN [Concomitant]
     Indication: CARDIOVASCULAR EVENT PROPHYLAXIS
  9. GEMFIBROZIL [Concomitant]
     Indication: HIGH DENSITY LIPOPROTEIN DECREASED
  10. NIASPAN [Suspect]
     Dates: start: 20110513, end: 20110610
  11. CRESTOR [Suspect]
     Dates: start: 20100312, end: 20100317
  12. GEMFIBROZIL [Concomitant]
     Indication: BLOOD CHOLESTEROL INCREASED
  13. CALCIUM CARBONATE [Concomitant]
     Indication: BLOOD CALCIUM
  14. ATENOLOL [Concomitant]
     Indication: MITRAL VALVE PROLAPSE
  15. NIASPAN [Suspect]
     Indication: BLOOD CHOLESTEROL INCREASED
     Route: 048
     Dates: start: 20081101, end: 20090101

REACTIONS (4)
  - HIGH DENSITY LIPOPROTEIN DECREASED [None]
  - MYALGIA [None]
  - MUSCLE SPASMS [None]
  - LOW DENSITY LIPOPROTEIN INCREASED [None]
